FAERS Safety Report 12726298 (Version 1)
Quarter: 2016Q3

REPORT INFORMATION
  Report Type: Spontaneous
  Country: US (occurrence: US)
  Receive Date: 20160906
  Receipt Date: 20160906
  Transmission Date: 20161109
  Serious: Yes (Disabling)
  Sender: FDA-Public Use
  Company Number: None

PATIENT
  Age: 61 Year
  Sex: Female
  Weight: 64.8 kg

DRUGS (20)
  1. LEVOTHYROXINE. [Concomitant]
     Active Substance: LEVOTHYROXINE
  2. LEVOCETIRIZINE [Concomitant]
     Active Substance: LEVOCETIRIZINE
  3. VOLTAREN [Concomitant]
     Active Substance: DICLOFENAC SODIUM
  4. MAGNESIUM [Concomitant]
     Active Substance: MAGNESIUM
  5. LORAZEPAM. [Concomitant]
     Active Substance: LORAZEPAM
  6. FLEXERIL [Concomitant]
     Active Substance: CYCLOBENZAPRINE HYDROCHLORIDE
  7. NABUMATONE [Concomitant]
     Active Substance: NABUMETONE
  8. EXCEDRIN EX [Concomitant]
  9. VITAMIN C500 [Concomitant]
  10. ABILIFY [Concomitant]
     Active Substance: ARIPIPRAZOLE
  11. ESTROGEN [Concomitant]
     Active Substance: ESTRONE\SUS SCROFA OVARY
  12. VITAMIN SUPER B COMPLEX [Concomitant]
  13. LYRICA [Concomitant]
     Active Substance: PREGABALIN
  14. LEVOCETIRIZINE DIHYD [Suspect]
     Active Substance: LEVOCETIRIZINE DIHYDROCHLORIDE
     Indication: MULTIPLE ALLERGIES
     Dosage: 1 TABLET AT BEDTIME ORAL
     Route: 048
  15. EFFEXOR [Concomitant]
     Active Substance: VENLAFAXINE HYDROCHLORIDE
  16. VALTREX [Concomitant]
     Active Substance: VALACYCLOVIR HYDROCHLORIDE
  17. OXYCODONE [Concomitant]
     Active Substance: OXYCODONE
  18. ROPINEROL [Concomitant]
  19. TOPAMAX [Concomitant]
     Active Substance: TOPIRAMATE
  20. WOMENS 50+ VITAMIN/MINERAL SUPPLEMENT [Concomitant]

REACTIONS (4)
  - Pruritus [None]
  - Dizziness [None]
  - Abdominal discomfort [None]
  - Headache [None]

NARRATIVE: CASE EVENT DATE: 20160806
